FAERS Safety Report 14762172 (Version 1)
Quarter: 2018Q2

REPORT INFORMATION
  Report Type: Spontaneous
  Country: US (occurrence: US)
  Receive Date: 20180416
  Receipt Date: 20180416
  Transmission Date: 20180711
  Serious: No
  Sender: FDA-Public Use
  Company Number: US-BION-006948

PATIENT
  Age: 83 Year
  Sex: Female
  Weight: 62 kg

DRUGS (1)
  1. ALEVE [Suspect]
     Active Substance: NAPROXEN SODIUM
     Indication: BACK PAIN
     Dosage: 1 LIQUID GEL EVERY 12 HOURS
     Route: 048
     Dates: start: 20180202, end: 20180204

REACTIONS (6)
  - Weight increased [Not Recovered/Not Resolved]
  - Product packaging quantity issue [Unknown]
  - Peripheral swelling [Recovering/Resolving]
  - Cough [Not Recovered/Not Resolved]
  - Drug ineffective for unapproved indication [Not Recovered/Not Resolved]
  - Dysphonia [Not Recovered/Not Resolved]

NARRATIVE: CASE EVENT DATE: 20180202
